FAERS Safety Report 21763711 (Version 1)
Quarter: 2022Q4

REPORT INFORMATION
  Report Type: Spontaneous
  Country: US (occurrence: US)
  Receive Date: 20221222
  Receipt Date: 20221222
  Transmission Date: 20230112
  Serious: No
  Sender: FDA-Public Use
  Company Number: US-GSK-US2022188772

PATIENT
  Age: 56 Year
  Sex: Male
  Weight: 99.79 kg

DRUGS (1)
  1. BENLYSTA [Suspect]
     Active Substance: BELIMUMAB
     Indication: Product used for unknown indication
     Dosage: UNK
     Dates: start: 20221103, end: 20221103

REACTIONS (1)
  - Rash [Unknown]

NARRATIVE: CASE EVENT DATE: 20221103
